FAERS Safety Report 5087880-4 (Version None)
Quarter: 2006Q3

REPORT INFORMATION
  Report Type: 
  Country: None (occurrence: None)
  Receive Date: 20060821
  Receipt Date: 20060821
  Transmission Date: 20061208
  Serious: Yes (Hospitalization)
  Sender: FDA-Public Use
  Company Number: None

PATIENT
  Sex: Male

DRUGS (3)
  1. ZEVALIN [Suspect]
     Indication: NON-HODGKIN'S LYMPHOMA
     Dosage: 5MCI IV
     Route: 042
     Dates: start: 20060712
  2. ZEVALIN [Suspect]
     Indication: NON-HODGKIN'S LYMPHOMA
     Dosage: 0.3 MCI/KG IV
     Route: 042
     Dates: start: 20060719
  3. NEULASTA [Concomitant]

REACTIONS (2)
  - CELLULITIS [None]
  - NEUTROPENIA [None]
